FAERS Safety Report 8770983 (Version 2)
Quarter: 2012Q4

REPORT INFORMATION
  Report Type: 
  Country: US (occurrence: US)
  Receive Date: 20120906
  Receipt Date: 20120913
  Transmission Date: 20130627
  Serious: No
  Sender: FDA-Public Use
  Company Number: US-PFIZER INC-2012217908

PATIENT
  Age: 71 Year
  Sex: Female
  Weight: 81.63 kg

DRUGS (4)
  1. LIPITOR [Suspect]
     Indication: BLOOD CHOLESTEROL INCREASED
     Dosage: 80 mg, 1x/day
     Route: 048
  2. LIPITOR [Suspect]
     Dosage: 40 mg, 1x/day
     Route: 048
     Dates: end: 2012
  3. PLAVIX [Concomitant]
     Indication: ANTICOAGULANT THERAPY
     Dosage: 40 mg, daily
  4. ACETYLSALICYLIC ACID [Concomitant]
     Indication: CARDIAC DISORDER
     Dosage: 81 mg, daily

REACTIONS (1)
  - Blood cholesterol increased [Unknown]
